FAERS Safety Report 7796051-X (Version None)
Quarter: 2011Q4

REPORT INFORMATION
  Report Type: 
  Country: None (occurrence: None)
  Receive Date: 20111004
  Receipt Date: 20110927
  Transmission Date: 20120403
  Serious: Yes (Death, Hospitalization)
  Sender: FDA-Public Use
  Company Number: US-AMGEN-USACT2011047348

PATIENT
  Age: 8 Year
  Sex: Female

DRUGS (8)
  1. MAG-OX [Concomitant]
     Dosage: 400 MG, UNK
     Route: 048
     Dates: start: 20110829, end: 20110917
  2. PANITUMUMAB [Suspect]
     Indication: NEOPLASM MALIGNANT
     Dosage: 53 MG, QWK
     Route: 042
     Dates: start: 20110901, end: 20110908
  3. METHADONE HCL [Concomitant]
     Dosage: 5 MG, BID
     Route: 048
     Dates: start: 20110901, end: 20110917
  4. POTASSIUM CHLORIDE [Concomitant]
     Dosage: 11.25 ML, UNK
     Route: 048
     Dates: start: 20110829, end: 20110917
  5. MIRALAX [Concomitant]
     Dosage: UNK UNK, QD
     Route: 048
     Dates: start: 20110829, end: 20110917
  6. ZOFRAN [Concomitant]
     Dosage: 4 MG, PRN
     Route: 048
     Dates: start: 20110901, end: 20110917
  7. DILAUDID [Concomitant]
     Dosage: 1 MG, PRN
     Route: 048
     Dates: start: 20110829, end: 20110917
  8. NEURONTIN [Concomitant]
     Dosage: 2 UNK, UNK
     Route: 048
     Dates: start: 20110908

REACTIONS (1)
  - RESPIRATORY DISTRESS [None]
